FAERS Safety Report 14804041 (Version 1)
Quarter: 2018Q2

REPORT INFORMATION
  Report Type: Spontaneous
  Country: US (occurrence: US)
  Receive Date: 20180425
  Receipt Date: 20180425
  Transmission Date: 20180711
  Serious: No
  Sender: FDA-Public Use
  Company Number: US-PFIZER INC-2018165986

PATIENT
  Age: 16 Year
  Sex: Male

DRUGS (2)
  1. METHOTREXATE SODIUM. [Suspect]
     Active Substance: METHOTREXATE SODIUM
     Indication: DESMOID TUMOUR
     Dosage: UNK (TOTAL OF 15 WEEKS)
  2. VINBLASTINE [Suspect]
     Active Substance: VINBLASTINE
     Indication: DESMOID TUMOUR
     Dosage: UNK (TOTAL OF 15 WEEKS)

REACTIONS (1)
  - Neoplasm progression [Unknown]
